FAERS Safety Report 14265992 (Version 2)
Quarter: 2018Q2

REPORT INFORMATION
  Report Type: Spontaneous
  Country: FR (occurrence: FR)
  Receive Date: 20171209
  Receipt Date: 20180521
  Transmission Date: 20180711
  Serious: Yes (Other)
  Sender: FDA-Public Use
  Company Number: FR-AUROBINDO-AUR-APL-2017-44400

PATIENT
  Age: 59 Year
  Sex: Female

DRUGS (2)
  1. PREDNISONE. [Suspect]
     Active Substance: PREDNISONE
     Indication: POLYCHONDRITIS
     Dosage: 50 MG, DAILY
     Route: 048
  2. TOCILIZUMAB. [Concomitant]
     Active Substance: TOCILIZUMAB
     Indication: POLYCHONDRITIS
     Dosage: 8 MILLIGRAM/KILOGRAM
     Route: 065

REACTIONS (2)
  - Drug resistance [Unknown]
  - Drug ineffective [Unknown]
